FAERS Safety Report 9253740 (Version 2)
Quarter: 2013Q2

REPORT INFORMATION
  Report Type: Spontaneous
  Country: CH (occurrence: None)
  Receive Date: 20130408
  Receipt Date: 20130529
  Transmission Date: 20140414
  Serious: Yes (Life-Threatening)
  Sender: FDA-Public Use
  Company Number: 20130181

PATIENT
  Age: 7 Year
  Sex: Female
  Weight: 30 kg

DRUGS (1)
  1. VENOFER [Suspect]
     Indication: IRON DEFICIENCY ANAEMIA
     Dosage: 700 MG, 1 IN 1 TOTAL
     Dates: start: 20130312

REACTIONS (8)
  - Drug administration error [None]
  - Vomiting [None]
  - Diarrhoea [None]
  - Pallor [None]
  - Erythema [None]
  - Hypotension [None]
  - Toxicity to various agents [None]
  - Accidental overdose [None]
